FAERS Safety Report 9619287 (Version 2)
Quarter: 2013Q4

REPORT INFORMATION
  Report Type: Spontaneous
  Country: AR (occurrence: AR)
  Receive Date: 20131014
  Receipt Date: 20131120
  Transmission Date: 20140711
  Serious: Yes (Life-Threatening, Hospitalization, Other)
  Sender: FDA-Public Use
  Company Number: AR-ROCHE-1288663

PATIENT
  Sex: Female
  Weight: 75 kg

DRUGS (6)
  1. XOLAIR [Suspect]
     Indication: PRODUCT USED FOR UNKNOWN INDICATION
     Route: 065
  2. CLONAZEPAM [Suspect]
     Indication: PRODUCT USED FOR UNKNOWN INDICATION
     Route: 065
  3. RISPERIDONE [Suspect]
     Indication: PRODUCT USED FOR UNKNOWN INDICATION
     Route: 065
  4. FLUTICASONE PROPIONATE [Concomitant]
     Dosage: 500/50
     Route: 065
     Dates: start: 2009
  5. MONTELUKAST [Concomitant]
     Route: 065
     Dates: start: 2012
  6. ALPRAZOLAM [Concomitant]
     Route: 065
     Dates: start: 2012

REACTIONS (1)
  - Suicidal ideation [Recovering/Resolving]
